FAERS Safety Report 7866287-8 (Version None)
Quarter: 2011Q4

REPORT INFORMATION
  Report Type: 
  Country: None (occurrence: None)
  Receive Date: 20111028
  Receipt Date: 20110525
  Transmission Date: 20120403
  Serious: No
  Sender: FDA-Public Use
  Company Number: US-GLAXOSMITHKLINE-A0929146A

PATIENT
  Age: 72 Year
  Sex: Male

DRUGS (4)
  1. MEDROL [Concomitant]
  2. ADVAIR DISKUS 100/50 [Suspect]
     Indication: PRODUCT USED FOR UNKNOWN INDICATION
     Dosage: 1PUFF TWICE PER DAY
     Route: 055
     Dates: start: 20071113
  3. COMBIVENT [Concomitant]
  4. ATENOLOL [Concomitant]

REACTIONS (3)
  - PRODUCT QUALITY ISSUE [None]
  - MALAISE [None]
  - DYSPNOEA [None]
